FAERS Safety Report 19812046 (Version 4)
Quarter: 2022Q4

REPORT INFORMATION
  Report Type: Spontaneous
  Country: US (occurrence: US)
  Receive Date: 20210909
  Receipt Date: 20221209
  Transmission Date: 20230112
  Serious: Yes (Hospitalization, Other)
  Sender: FDA-Public Use
  Company Number: US-BoehringerIngelheim-2021-BI-126084

PATIENT
  Age: 72 Year
  Sex: Male

DRUGS (2)
  1. JARDIANCE [Suspect]
     Active Substance: EMPAGLIFLOZIN
     Indication: Product used for unknown indication
     Dates: start: 202011, end: 202102
  2. JARDIANCE [Suspect]
     Active Substance: EMPAGLIFLOZIN
     Route: 048
     Dates: end: 20210817

REACTIONS (5)
  - Myocardial infarction [Recovering/Resolving]
  - Cystitis [Recovering/Resolving]
  - Blood glucose increased [Recovering/Resolving]
  - Glucose urine present [Unknown]
  - Infection [Unknown]

NARRATIVE: CASE EVENT DATE: 20210101
